FAERS Safety Report 6920850-7 (Version None)
Quarter: 2010Q3

REPORT INFORMATION
  Report Type: 
  Country: None (occurrence: None)
  Receive Date: 20100804
  Receipt Date: 20100107
  Transmission Date: 20110219
  Serious: No
  Sender: FDA-Public Use
  Company Number: 2010-0104

PATIENT
  Age: 84 Year
  Sex: Male
  Weight: 77.1 kg

DRUGS (4)
  1. SOMATULINE DEPOT [Suspect]
     Indication: BRAIN NEOPLASM
     Dosage: 90MG EVERY 28DAYS (90 MG, 1 IN 28 D), SUBCUTANEOUS
     Route: 058
     Dates: start: 20100106
  2. BENAZPRIL (BENAZEPRIL) [Concomitant]
  3. ATENOLOL [Concomitant]
  4. THYROXINE-SYNTHROID (LEVOTHYROXINE SODIUM) [Concomitant]

REACTIONS (2)
  - ABDOMINAL PAIN UPPER [None]
  - DIARRHOEA [None]
